FAERS Safety Report 16377921 (Version 1)
Quarter: 2019Q2

REPORT INFORMATION
  Report Type: Spontaneous
  Country: IT (occurrence: IT)
  Receive Date: 20190531
  Receipt Date: 20190531
  Transmission Date: 20190711
  Serious: Yes (Hospitalization)
  Sender: FDA-Public Use
  Company Number: IT-MYLANLABS-2019M1051033

PATIENT
  Age: 79 Year

DRUGS (5)
  1. BRUFEN 800 MG COMPRESSE RIVESTITE A RILASCIO PROLUNGATO [Suspect]
     Active Substance: IBUPROFEN
     Indication: PRODUCT USED FOR UNKNOWN INDICATION
     Dosage: UNK
     Route: 048
  2. QUETIAPINA ACCORD [Concomitant]
     Active Substance: QUETIAPINE
     Dosage: UNK
     Route: 048
  3. DINTOINA [Concomitant]
     Active Substance: PHENYTOIN SODIUM
     Dosage: UNK
  4. KEPPRA [Concomitant]
     Active Substance: LEVETIRACETAM
     Dosage: UNK
     Route: 048
  5. TEGRETOL [Concomitant]
     Active Substance: CARBAMAZEPINE
     Dosage: UNK
     Route: 048

REACTIONS (2)
  - Disorientation [Unknown]
  - Confusional state [Unknown]

NARRATIVE: CASE EVENT DATE: 20180927
